FAERS Safety Report 24664587 (Version 1)
Quarter: 2024Q4

REPORT INFORMATION
  Report Type: Spontaneous
  Country: IT (occurrence: IT)
  Receive Date: 20241126
  Receipt Date: 20241126
  Transmission Date: 20250115
  Serious: Yes (Other)
  Sender: MYLAN
  Company Number: IT-MYLANLABS-2024M1104610

PATIENT
  Sex: Male

DRUGS (3)
  1. PREDNISONE [Suspect]
     Active Substance: PREDNISONE
     Indication: Langerhans^ cell histiocytosis
     Dosage: UNK
     Route: 065
  2. VINBLASTINE [Suspect]
     Active Substance: VINBLASTINE
     Indication: Langerhans^ cell histiocytosis
     Dosage: UNK, WITH STANDARD REGIMEN
     Route: 065
  3. VINBLASTINE [Suspect]
     Active Substance: VINBLASTINE
     Dosage: UNK, WITH MAINTENANCE CHEMOTHERAPY
     Route: 065

REACTIONS (1)
  - Drug ineffective [Unknown]
